FAERS Safety Report 9709459 (Version 1)
Quarter: 2013Q4

REPORT INFORMATION
  Report Type: Report from Study
  Country: US (occurrence: US)
  Receive Date: 20131126
  Receipt Date: 20131126
  Transmission Date: 20140711
  Serious: Yes (Hospitalization, Other)
  Sender: FDA-Public Use
  Company Number: US-ROCHE-1306888

PATIENT
  Sex: Male
  Weight: 40.8 kg

DRUGS (4)
  1. NUTROPIN AQ [Suspect]
     Indication: GROWTH RETARDATION
     Dosage: FREQUENCY: DAILY
     Route: 058
     Dates: start: 201208
  2. ADDERALL XR [Concomitant]
     Route: 048
  3. LEXAPRO [Concomitant]
     Route: 048
  4. LITHIUM CARBONATE [Concomitant]
     Route: 048

REACTIONS (2)
  - Cellulitis orbital [Unknown]
  - Sinusitis [Unknown]
